FAERS Safety Report 16229810 (Version 1)
Quarter: 2019Q2

REPORT INFORMATION
  Report Type: Spontaneous
  Country: IN (occurrence: IN)
  Receive Date: 20190423
  Receipt Date: 20190423
  Transmission Date: 20190711
  Serious: Yes (Other)
  Sender: FDA-Public Use
  Company Number: IN-BAUSCH-BL-2019-011746

PATIENT
  Age: 7 Year
  Sex: Female

DRUGS (2)
  1. PREDNISOLONE. [Suspect]
     Active Substance: PREDNISOLONE
     Indication: PRODUCT USED FOR UNKNOWN INDICATION
     Dosage: 0.5-1 MG/KG OFF AND ON
     Route: 048
  2. PREDNISOLONE. [Suspect]
     Active Substance: PREDNISOLONE
     Dosage: 0.5-1 MG/KG OFF AND ON
     Route: 048

REACTIONS (17)
  - Drug dependence [Unknown]
  - Body height below normal [Recovering/Resolving]
  - Cortisol decreased [Recovered/Resolved]
  - Myalgia [Unknown]
  - Arthralgia [Unknown]
  - Osteopenia [Unknown]
  - Cataract [Recovering/Resolving]
  - Hypothalamo-pituitary disorder [Unknown]
  - Thyroxine decreased [Recovered/Resolved]
  - Hypothalamic pituitary adrenal axis suppression [Recovered/Resolved]
  - Drug abuse [Unknown]
  - Rickets [Recovering/Resolving]
  - Epiphyses delayed fusion [Unknown]
  - Steroid withdrawal syndrome [Unknown]
  - Blood thyroid stimulating hormone decreased [Recovered/Resolved]
  - Anaemia [Unknown]
  - Growth failure [Recovering/Resolving]
